FAERS Safety Report 9528041 (Version 2)
Quarter: 2013Q3

REPORT INFORMATION
  Report Type: Report from Study
  Country: CA (occurrence: CA)
  Receive Date: 20130917
  Receipt Date: 20130920
  Transmission Date: 20140515
  Serious: Yes (Other)
  Sender: FDA-Public Use
  Company Number: CA-ROCHE-1276110

PATIENT
  Age: 58 Year
  Sex: Male

DRUGS (9)
  1. RITUXAN [Suspect]
     Indication: IMMUNOGLOBULIN G4 RELATED SCLEROSING DISEASE
     Dosage: PREVIOUS DOSE OF RITUXIMAB WAS ON 12/NOV/2012
     Route: 042
     Dates: start: 20121029
  2. RITUXAN [Suspect]
     Indication: OFF LABEL USE
  3. AVODART [Concomitant]
  4. TAMSULOSIN [Concomitant]
  5. METFORMIN [Concomitant]
     Dosage: OCCASIONALLY WHEN CAN^T TAKE THE INSULIN
     Route: 065
  6. INSULIN [Concomitant]
  7. SIMVASTATIN [Concomitant]
  8. BISOPROLOL [Concomitant]
  9. COVERSYL [Concomitant]

REACTIONS (2)
  - Lower extremity mass [Not Recovered/Not Resolved]
  - Cough [Not Recovered/Not Resolved]
